FAERS Safety Report 13700982 (Version 1)
Quarter: 2017Q2

REPORT INFORMATION
  Report Type: Spontaneous
  Country: US (occurrence: US)
  Receive Date: 20170628
  Receipt Date: 20170628
  Transmission Date: 20170830
  Serious: Yes (Other)
  Sender: FDA-Public Use
  Company Number: None

PATIENT
  Age: 25 Year
  Sex: Female
  Weight: 54 kg

DRUGS (1)
  1. TALTZ [Suspect]
     Active Substance: IXEKIZUMAB
     Indication: PSORIASIS
     Dosage: ?          OTHER DOSE:MG;OTHER FREQUENCY:AT WEEK 0;?
     Route: 058
     Dates: start: 20170515

REACTIONS (3)
  - Injection site pruritus [None]
  - Swelling [None]
  - Erythema [None]

NARRATIVE: CASE EVENT DATE: 20170515
